FAERS Safety Report 4804543-8 (Version None)
Quarter: 2005Q4

REPORT INFORMATION
  Report Type: 
  Country: None (occurrence: None)
  Receive Date: 20051020
  Receipt Date: 20051006
  Transmission Date: 20060501
  Serious: Yes (Hospitalization)
  Sender: FDA-Public Use
  Company Number: PHEH2005US11238

PATIENT
  Age: 10 Year
  Sex: Male
  Weight: 83 kg

DRUGS (6)
  1. FOCALIN [Suspect]
     Indication: ATTENTION DEFICIT/HYPERACTIVITY DISORDER
     Dosage: 1 Q 3 PM
     Route: 048
     Dates: start: 20050610, end: 20050802
  2. RITALIN [Concomitant]
     Dosage: 20 MG, UNK
  3. GEODON [Concomitant]
     Dosage: 40 MG, UNK
  4. TRILEPTAL [Concomitant]
     Dosage: 300 MG, UNK
  5. CLONIDINE [Concomitant]
     Dosage: 0.1 MG, UNK
  6. BUSPAR [Concomitant]
     Dosage: 15 MG, UNK

REACTIONS (1)
  - CONVULSION [None]
